FAERS Safety Report 5670082-8 (Version None)
Quarter: 2008Q1

REPORT INFORMATION
  Report Type: 
  Country: None (occurrence: None)
  Receive Date: 20080312
  Receipt Date: 20080226
  Transmission Date: 20080703
  Serious: Yes (Death)
  Sender: FDA-Public Use
  Company Number: VISP-NO-0802S-0116

PATIENT
  Age: 83 Year
  Sex: Female

DRUGS (2)
  1. VISIPAQUE [Suspect]
     Indication: DRUG USE FOR UNKNOWN INDICATION
     Dosage: 120 ML, SINGLE DOSE, I.V.
     Route: 042
     Dates: start: 20080218, end: 20080218
  2. VISIPAQUE [Suspect]

REACTIONS (4)
  - CARDIAC ARREST [None]
  - DEPRESSED LEVEL OF CONSCIOUSNESS [None]
  - MALAISE [None]
  - VOMITING [None]
